FAERS Safety Report 6242263-6 (Version None)
Quarter: 2009Q2

REPORT INFORMATION
  Report Type: 
  Country: None (occurrence: None)
  Receive Date: 20090622
  Receipt Date: 20090622
  Transmission Date: 20091009
  Serious: No
  Sender: FDA-Public Use
  Company Number: None

PATIENT
  Age: 58 Year
  Sex: Male
  Weight: 81.6475 kg

DRUGS (3)
  1. ZICAM NOT SURE NOT SURE [Suspect]
     Indication: MULTIPLE ALLERGIES
     Dates: start: 20080601, end: 20090621
  2. ZICAM NOT SURE NOT SURE [Suspect]
     Indication: NASOPHARYNGITIS
     Dates: start: 20080601, end: 20090621
  3. VITAMINS [Concomitant]

REACTIONS (1)
  - ANOSMIA [None]
